FAERS Safety Report 8499411-7 (Version None)
Quarter: 2012Q2

REPORT INFORMATION
  Report Type: 
  Country: None (occurrence: None)
  Receive Date: 20120619
  Receipt Date: 20120608
  Transmission Date: 20120825
  Serious: Yes (Other)
  Sender: FDA-Public Use
  Company Number: 2012032601

PATIENT
  Age: 73 Year
  Sex: Female
  Weight: 118 kg

DRUGS (14)
  1. HEPARIN [Concomitant]
  2. ALBUTEROL SULFATE AND IPRATROPIUM BROMIDE [Concomitant]
  3. MAGNESIUM HYDROXIDE TAB [Concomitant]
  4. BALMEX (BALMEX) [Concomitant]
  5. VANCOMYCIN [Concomitant]
  6. CLOTRIMAZOLE [Concomitant]
  7. FUROSEMIDE (FUROSEMIDE) [Concomitant]
  8. ALBUMINAR [Suspect]
     Indication: URINE OUTPUT DECREASED
     Dosage: SEE IMAGE
     Route: 040
     Dates: start: 20120419, end: 20120419
  9. ALBUMINAR [Suspect]
     Indication: URINE OUTPUT DECREASED
     Dosage: SEE IMAGE
     Route: 040
     Dates: start: 20120429, end: 20120429
  10. METOPROLOL TARTRATE [Concomitant]
  11. PREDNISONE TAB [Concomitant]
  12. ASPIRIN [Concomitant]
  13. DOCUSATE (DOCUSATE) [Concomitant]
  14. EUCERIN (UREA) [Concomitant]

REACTIONS (2)
  - BLOOD PRESSURE DECREASED [None]
  - OFF LABEL USE [None]
